FAERS Safety Report 5900768-9 (Version None)
Quarter: 2008Q3

REPORT INFORMATION
  Report Type: 
  Country: None (occurrence: None)
  Receive Date: 20080925
  Receipt Date: 20080912
  Transmission Date: 20090109
  Serious: Yes (Death, Hospitalization)
  Sender: FDA-Public Use
  Company Number: 2008001552

PATIENT
  Age: 82 Year
  Sex: Female

DRUGS (7)
  1. ERLOTINIB (TABLET) [Suspect]
     Indication: LUNG ADENOCARCINOMA
     Dosage: (150 MG, QD), ORAL
     Route: 048
     Dates: start: 20080523, end: 20080610
  2. GEFITINIB [Suspect]
  3. IMIDAPRIL (IMIDAPRIL) [Concomitant]
  4. NORVASC [Concomitant]
  5. PRAVASTATIN [Concomitant]
  6. NAPROXEN [Concomitant]
  7. REBAMIPIDE (REBAMIPIDE) [Concomitant]

REACTIONS (8)
  - DUODENAL PERFORATION [None]
  - DUODENAL ULCER [None]
  - GENERAL PHYSICAL HEALTH DETERIORATION [None]
  - HYPERCALCAEMIA [None]
  - HYPERLIPIDAEMIA [None]
  - HYPERTENSION [None]
  - MALIGNANT NEOPLASM PROGRESSION [None]
  - MENTAL DISORDER [None]
